FAERS Safety Report 21483805 (Version 1)
Quarter: 2022Q4

REPORT INFORMATION
  Report Type: Spontaneous
  Country: DE (occurrence: DE)
  Receive Date: 20221020
  Receipt Date: 20221020
  Transmission Date: 20230112
  Serious: Yes (Other)
  Sender: FDA-Public Use
  Company Number: None

PATIENT
  Sex: Male
  Weight: 59 kg

DRUGS (1)
  1. OFEV [Suspect]
     Active Substance: NINTEDANIB
     Indication: Pulmonary fibrosis
     Route: 048
     Dates: start: 201509, end: 202209

REACTIONS (4)
  - Rectourethral fistula [Unknown]
  - Fistula of small intestine [Recovered/Resolved with Sequelae]
  - Douglas^ abscess [Recovered/Resolved with Sequelae]
  - Abdominal pain lower [Unknown]

NARRATIVE: CASE EVENT DATE: 20200401
